FAERS Safety Report 18186086 (Version 2)
Quarter: 2020Q3

REPORT INFORMATION
  Report Type: Spontaneous
  Country: US (occurrence: US)
  Receive Date: 20200824
  Receipt Date: 20200826
  Transmission Date: 20201103
  Serious: Yes (Death)
  Sender: FDA-Public Use
  Company Number: US-ROCHE-2664663

PATIENT
  Age: 86 Year
  Sex: Female

DRUGS (1)
  1. XELODA [Suspect]
     Active Substance: CAPECITABINE
     Indication: COLON CANCER
     Dosage: TABLETS 500 MG
     Route: 048
     Dates: start: 20191209, end: 20200814

REACTIONS (1)
  - Death [Fatal]

NARRATIVE: CASE EVENT DATE: 20200814
